FAERS Safety Report 15169157 (Version 7)
Quarter: 2020Q1

REPORT INFORMATION
  Report Type: Report from Study
  Country: CA (occurrence: CA)
  Receive Date: 20180720
  Receipt Date: 20200226
  Transmission Date: 20200409
  Serious: No
  Sender: FDA-Public Use
  Company Number: CA-ROCHE-2157811

PATIENT
  Age: 54 Year
  Sex: Female

DRUGS (4)
  1. OCREVUS [Suspect]
     Active Substance: OCRELIZUMAB
     Indication: RELAPSING-REMITTING MULTIPLE SCLEROSIS
     Dosage: DAY 0 AND DAY 14
     Route: 042
     Dates: start: 20180716
  2. OCREVUS [Suspect]
     Active Substance: OCRELIZUMAB
     Route: 042
     Dates: start: 20180716
  3. LEVAQUIN [Concomitant]
     Active Substance: LEVOFLOXACIN
  4. FLUTICASONE. [Concomitant]
     Active Substance: FLUTICASONE

REACTIONS (6)
  - Fatigue [Not Recovered/Not Resolved]
  - Bronchitis [Not Recovered/Not Resolved]
  - Cough [Recovering/Resolving]
  - Cystitis [Unknown]
  - Peripheral swelling [Not Recovered/Not Resolved]
  - Urinary tract infection [Not Recovered/Not Resolved]

NARRATIVE: CASE EVENT DATE: 20180731
